FAERS Safety Report 6142221-6 (Version None)
Quarter: 2009Q2

REPORT INFORMATION
  Report Type: 
  Country: None (occurrence: None)
  Receive Date: 20090403
  Receipt Date: 20071115
  Transmission Date: 20091009
  Serious: Yes (Death, Hospitalization, Other)
  Sender: FDA-Public Use
  Company Number: US-ASTRAZENECA-2007UW24349

PATIENT
  Age: 17 Year
  Sex: Male
  Weight: 50 kg

DRUGS (32)
  1. SEROQUEL [Suspect]
     Indication: PSYCHOTIC DISORDER
     Dosage: 25-75 MG
     Route: 048
     Dates: start: 20020310
  2. SEROQUEL [Suspect]
     Indication: INSOMNIA
     Dosage: 25-75 MG
     Route: 048
     Dates: start: 20020310
  3. SEROQUEL [Suspect]
     Indication: ANXIETY
     Dosage: 25-75 MG
     Route: 048
     Dates: start: 20020310
  4. SEROQUEL [Suspect]
     Indication: AGITATION
     Dosage: 25-75 MG
     Route: 048
     Dates: start: 20020310
  5. TEGRETOL [Concomitant]
     Indication: CONVULSION
  6. DILAUDID [Concomitant]
  7. EPOGEN [Concomitant]
  8. CYCLOSPORINE [Concomitant]
  9. VALGANCICLOVIR HCL [Concomitant]
  10. SOLU-MEDROL [Concomitant]
  11. BACTRIM [Concomitant]
  12. VASOTEC [Concomitant]
  13. CARAFATE [Concomitant]
  14. ADALAT [Concomitant]
  15. DILUCAN [Concomitant]
  16. VALCYTE [Concomitant]
  17. IMURAN [Concomitant]
  18. NEORAL [Concomitant]
  19. PRNDILAJDID [Concomitant]
  20. ZOFRAN [Concomitant]
  21. TYLENOL [Concomitant]
  22. LASIX [Concomitant]
  23. ZANTAC [Concomitant]
  24. ABUMISOL [Concomitant]
  25. BENADRYL [Concomitant]
  26. DIFLUCAN [Concomitant]
  27. PRILOSEC [Concomitant]
  28. ERYTHROMYCIN [Concomitant]
  29. PREDNISONE [Concomitant]
  30. MORPHINE SULFATE [Concomitant]
  31. SODIUM PHOSPHATE [Concomitant]
  32. POTASSIUM PHOSPHATES [Concomitant]

REACTIONS (30)
  - ABDOMINAL PAIN [None]
  - ABDOMINAL PAIN UPPER [None]
  - ANAEMIA [None]
  - ANOREXIA [None]
  - ANXIETY [None]
  - CARDIO-RESPIRATORY ARREST [None]
  - COMPLEX PARTIAL SEIZURES [None]
  - CONVULSION [None]
  - COUGH [None]
  - DIZZINESS [None]
  - DYSPEPSIA [None]
  - DYSPHAGIA [None]
  - FLUID OVERLOAD [None]
  - GASTROOESOPHAGEAL REFLUX DISEASE [None]
  - HALLUCINATIONS, MIXED [None]
  - HOMICIDAL IDEATION [None]
  - HYPERCALCAEMIA [None]
  - HYPERPARATHYROIDISM [None]
  - HYPOPHOSPHATAEMIA [None]
  - IMPAIRED GASTRIC EMPTYING [None]
  - NASOPHARYNGITIS [None]
  - NAUSEA [None]
  - PANCREATITIS [None]
  - PERITONITIS [None]
  - PERITONITIS BACTERIAL [None]
  - PRURITUS GENERALISED [None]
  - PSYCHOTIC DISORDER [None]
  - PUPILLARY REFLEX IMPAIRED [None]
  - RENAL FAILURE CHRONIC [None]
  - VOMITING [None]
